FAERS Safety Report 21052747 (Version 1)
Quarter: 2022Q3

REPORT INFORMATION
  Report Type: Spontaneous
  Country: US (occurrence: US)
  Receive Date: 20220707
  Receipt Date: 20220707
  Transmission Date: 20221027
  Serious: Yes (Other)
  Sender: FDA-Public Use
  Company Number: US-LUNDBECK-DKLU3049839

PATIENT
  Age: 1 Year
  Sex: Female

DRUGS (5)
  1. SABRIL [Suspect]
     Active Substance: VIGABATRIN
     Indication: Infantile spasms
     Route: 065
     Dates: start: 202201
  2. SABRIL [Suspect]
     Active Substance: VIGABATRIN
     Dosage: WRONG AM DOSE ADMINISTERED
     Route: 065
     Dates: start: 20220630
  3. SABRIL [Suspect]
     Active Substance: VIGABATRIN
     Route: 065
     Dates: start: 20220630
  4. SABRIL [Suspect]
     Active Substance: VIGABATRIN
     Dosage: PRESCRIBED AM DOSE
     Route: 065
     Dates: start: 20220630
  5. SABRIL [Suspect]
     Active Substance: VIGABATRIN
     Dosage: PRESCRIBED PM DOSE
     Route: 065
     Dates: start: 20220630

REACTIONS (2)
  - Surgery [Unknown]
  - Incorrect dose administered [Unknown]

NARRATIVE: CASE EVENT DATE: 20220630
